FAERS Safety Report 8562346-5 (Version None)
Quarter: 2012Q3

REPORT INFORMATION
  Report Type: 
  Country: None (occurrence: None)
  Receive Date: 20120802
  Receipt Date: 20120712
  Transmission Date: 20120928
  Serious: No
  Sender: FDA-Public Use
  Company Number: US-AMGEN-USASP2012001391

PATIENT
  Age: 76 Year
  Sex: Female

DRUGS (2)
  1. ENBREL [Suspect]
     Indication: RHEUMATOID ARTHRITIS
     Dosage: 50 MG, ONCE IN TWO WEEKS
     Dates: start: 20110912
  2. ARAVA [Concomitant]
     Dosage: 1 MG, UNK
     Dates: start: 19930101

REACTIONS (9)
  - MUSCLE STRAIN [None]
  - PRURITUS [None]
  - VAGINAL CYST [None]
  - GAIT DISTURBANCE [None]
  - RASH [None]
  - DEFORMITY [None]
  - BACK PAIN [None]
  - CYST RUPTURE [None]
  - RASH MACULO-PAPULAR [None]
